FAERS Safety Report 6471147-3 (Version None)
Quarter: 2009Q4

REPORT INFORMATION
  Report Type: 
  Country: None (occurrence: None)
  Receive Date: 20091203
  Receipt Date: 20080128
  Transmission Date: 20100525
  Serious: Yes (Other)
  Sender: FDA-Public Use
  Company Number: TR-ELI_LILLY_AND_COMPANY-TR200801006830

PATIENT
  Sex: Female
  Weight: 80 kg

DRUGS (3)
  1. HUMULIN 70/30 [Suspect]
     Indication: TYPE 2 DIABETES MELLITUS
     Dosage: 24 IU, EACH MORNING
     Route: 058
     Dates: start: 19980101
  2. HUMULIN 70/30 [Suspect]
     Dosage: 24 IU, EACH EVENING
     Route: 058
     Dates: start: 19980101
  3. LANTUS [Concomitant]
     Dosage: 8 IU, EACH NIGHT
     Route: 065

REACTIONS (2)
  - FOOT AMPUTATION [None]
  - TOE AMPUTATION [None]
